FAERS Safety Report 7147065-4 (Version None)
Quarter: 2010Q4

REPORT INFORMATION
  Report Type: 
  Country: None (occurrence: None)
  Receive Date: 20101209
  Receipt Date: 20081126
  Transmission Date: 20110411
  Serious: Yes (Death, Hospitalization, Other)
  Sender: FDA-Public Use
  Company Number: US-ACTELION-A-NJ2008-23774

PATIENT

DRUGS (15)
  1. TRACLEER [Suspect]
     Indication: PULMONARY HYPERTENSION
     Dosage: 62.5 MG, BID
     Route: 048
     Dates: start: 20080211
  2. VENTAVIS [Concomitant]
     Indication: PULMONARY HYPERTENSION
     Dosage: 2.5 UG, 6 TO 9 X DAY
     Route: 055
     Dates: start: 20081023, end: 20081114
  3. REVATIO [Concomitant]
  4. RENAGEL [Concomitant]
  5. ASPIRIN [Concomitant]
  6. ZOCOR [Concomitant]
  7. METOPROLOL [Concomitant]
  8. DIGOXIN [Concomitant]
  9. ATIVAN [Concomitant]
  10. PERCOCET [Concomitant]
  11. LEVOTHYROXINE SODIUM [Concomitant]
  12. NEXIUM [Concomitant]
  13. AMBIEN [Concomitant]
  14. POTASSIUM CHLORIDE [Concomitant]
  15. VICODIN [Concomitant]

REACTIONS (16)
  - ANAEMIA [None]
  - ATRIAL FIBRILLATION [None]
  - CHEST PAIN [None]
  - DEATH [None]
  - DIARRHOEA [None]
  - DYSPNOEA [None]
  - GASTROENTERITIS VIRAL [None]
  - GASTROINTESTINAL HAEMORRHAGE [None]
  - GRAFT INFECTION [None]
  - HYDROCELE [None]
  - MELAENA [None]
  - NAUSEA [None]
  - PALPITATIONS [None]
  - PERICARDIAL EFFUSION [None]
  - PYREXIA [None]
  - VOMITING [None]
